FAERS Safety Report 16806728 (Version 2)
Quarter: 2019Q3

REPORT INFORMATION
  Report Type: Spontaneous
  Country: US (occurrence: US)
  Receive Date: 20190913
  Receipt Date: 20190927
  Transmission Date: 20191005
  Serious: Yes (Hospitalization)
  Sender: FDA-Public Use
  Company Number: US-LEXICON PHARMACEUTICALS, INC-19-1606-00878

PATIENT
  Sex: Female

DRUGS (9)
  1. CREON [Concomitant]
     Active Substance: PANCRELIPASE AMYLASE\PANCRELIPASE LIPASE\PANCRELIPASE PROTEASE
  2. AMLODIPINE [Concomitant]
     Active Substance: AMLODIPINE BESYLATE
  3. LOSARTAN. [Concomitant]
     Active Substance: LOSARTAN
  4. VITAMIN D [Concomitant]
     Active Substance: VITAMIN D NOS
  5. DIPHENOXYLATE [Concomitant]
     Active Substance: DIPHENOXYLATE
  6. MULTIVITAMIN [Concomitant]
     Active Substance: VITAMINS
  7. TELOTRISTAT ETHYL [Suspect]
     Active Substance: TELOTRISTAT ETHYL
     Indication: CARCINOID SYNDROME
     Route: 048
     Dates: start: 20190718
  8. AFINITOR [Concomitant]
     Active Substance: EVEROLIMUS
  9. SANDOSTATIN [Concomitant]
     Active Substance: OCTREOTIDE ACETATE

REACTIONS (4)
  - Malaise [Unknown]
  - Nausea [Not Recovered/Not Resolved]
  - Dialysis [Not Recovered/Not Resolved]
  - Somnolence [Unknown]
